FAERS Safety Report 7916564-7 (Version None)
Quarter: 2011Q4

REPORT INFORMATION
  Report Type: 
  Country: None (occurrence: None)
  Receive Date: 20111116
  Receipt Date: 20111102
  Transmission Date: 20120403
  Serious: Yes (Life-Threatening, Hospitalization, Other)
  Sender: FDA-Public Use
  Company Number: DE-RANBAXY-2011RR-50412

PATIENT
  Age: 76 Year
  Sex: Female
  Weight: 88 kg

DRUGS (4)
  1. FENISTIL [Suspect]
     Indication: PRODUCT USED FOR UNKNOWN INDICATION
     Dosage: UNK
     Route: 042
     Dates: start: 20110314, end: 20110704
  2. TAXOL [Suspect]
     Indication: OVARIAN CANCER
     Dosage: 100-160 MG
     Route: 042
     Dates: start: 20110314, end: 20110704
  3. ONDANESTRON [Suspect]
     Indication: PRODUCT USED FOR UNKNOWN INDICATION
     Dosage: UNK
     Route: 042
     Dates: start: 20110314, end: 20110704
  4. RANITIDINE [Suspect]
     Indication: PRODUCT USED FOR UNKNOWN INDICATION
     Dosage: UNK
     Route: 042
     Dates: start: 20110314, end: 20110704

REACTIONS (1)
  - RENAL FAILURE ACUTE [None]
